FAERS Safety Report 4348657-8 (Version None)
Quarter: 2004Q1

REPORT INFORMATION
  Report Type: 
  Country: None (occurrence: None)
  Receive Date: 20040325
  Receipt Date: 20040112
  Transmission Date: 20041129
  Serious: No
  Sender: FDA-Public Use
  Company Number: USA040156381

PATIENT
  Age: 72 Year

DRUGS (6)
  1. FORTEO [Suspect]
     Indication: OSTEOPOROSIS
     Dosage: 20 UG/DAY
     Dates: start: 20030701
  2. COSOPT [Concomitant]
  3. AMBIEN [Concomitant]
  4. COZAAR [Concomitant]
  5. LASIX [Concomitant]
  6. PREMARIN [Concomitant]

REACTIONS (1)
  - TINNITUS [None]
